FAERS Safety Report 7635770-2 (Version None)
Quarter: 2011Q3

REPORT INFORMATION
  Report Type: 
  Country: None (occurrence: None)
  Receive Date: 20110726
  Receipt Date: 20110723
  Transmission Date: 20111222
  Serious: Yes (Other)
  Sender: FDA-Public Use
  Company Number: US-PFIZER INC-2011167406

PATIENT
  Sex: Female
  Weight: 80.726 kg

DRUGS (8)
  1. WARFARIN SODIUM [Concomitant]
     Indication: ATRIAL FIBRILLATION
     Dosage: AT 5 MG DAILY OR 2.5 MG THREE TIMES A DAY
  2. COZAAR [Concomitant]
     Dosage: UNK
  3. NEURONTIN [Concomitant]
     Indication: TRIGEMINAL NEURALGIA
     Dosage: 400 MG, 5X/DAY
  4. TOPROL-XL [Concomitant]
     Indication: CARDIAC DISORDER
     Dosage: 50 MG, DAILY
  5. LASIX [Concomitant]
     Indication: DIURETIC THERAPY
     Dosage: 40 MG, DAILY
  6. AMIODARONE HCL [Suspect]
     Dosage: 200 MG, 2X/DAY
     Dates: start: 20110101
  7. AMIODARONE HCL [Suspect]
     Indication: CARDIOVERSION
     Dosage: UNK
     Dates: start: 20110510
  8. AMIODARONE HCL [Suspect]
     Dosage: 200 MG,DAILY
     Dates: start: 20110617, end: 20110101

REACTIONS (4)
  - RASH MORBILLIFORM [None]
  - SKIN ULCER [None]
  - OEDEMA PERIPHERAL [None]
  - CELLULITIS [None]
